FAERS Safety Report 5010302-6 (Version None)
Quarter: 2006Q2

REPORT INFORMATION
  Report Type: 
  Country: None (occurrence: None)
  Receive Date: 20060404
  Receipt Date: 20051201
  Transmission Date: 20061013
  Serious: No
  Sender: FDA-Public Use
  Company Number: US200512000980

PATIENT
  Age: 65 Year
  Sex: Female

DRUGS (2)
  1. CYMBALTA [Suspect]
     Dosage: 30 MG, DAILY (1/D),
     Dates: start: 20051001, end: 20051001
  2. OXYGEN (OXYGEN) [Concomitant]

REACTIONS (2)
  - CONFUSIONAL STATE [None]
  - FLUSHING [None]
